FAERS Safety Report 16798487 (Version 1)
Quarter: 2019Q3

REPORT INFORMATION
  Report Type: Spontaneous
  Country: HR (occurrence: HR)
  Receive Date: 20190912
  Receipt Date: 20190912
  Transmission Date: 20191005
  Serious: Yes (Other)
  Sender: FDA-Public Use
  Company Number: HR-UCBSA-2019037998

PATIENT
  Age: 51 Year
  Sex: Female

DRUGS (2)
  1. CIMZIA [Suspect]
     Active Substance: CERTOLIZUMAB PEGOL
     Indication: ANKYLOSING SPONDYLITIS
     Dosage: 400 MILLIGRAM, MONTHLY (QM)
     Route: 058
     Dates: start: 20180328, end: 201906
  2. KETONAL [KETOPROFEN] [Concomitant]
     Indication: ANKYLOSING SPONDYLITIS
     Dosage: 100 MILLIGRAM, ONCE DAILY (QD)
     Route: 048
     Dates: start: 2015

REACTIONS (2)
  - Ankylosing spondylitis [Recovered/Resolved]
  - Drug ineffective [Unknown]

NARRATIVE: CASE EVENT DATE: 201904
